FAERS Safety Report 9786005 (Version 2)
Quarter: 2014Q1

REPORT INFORMATION
  Report Type: Spontaneous
  Country: JP (occurrence: JP)
  Receive Date: 20131227
  Receipt Date: 20140123
  Transmission Date: 20141002
  Serious: Yes (Hospitalization, Other)
  Sender: FDA-Public Use
  Company Number: JP-PFIZER INC-2013370813

PATIENT
  Age: 67 Year
  Sex: Male

DRUGS (12)
  1. LYRICA [Suspect]
     Indication: NEURALGIA
     Dosage: 150 MG, DAILY
     Route: 048
     Dates: start: 20121212, end: 20130110
  2. LYRICA [Suspect]
     Dosage: 450 MG, DAILY
     Route: 048
     Dates: start: 20130111, end: 20131212
  3. LYRICA [Suspect]
     Dosage: 300 MG, DAILY
     Dates: start: 20131226
  4. OXYCONTIN [Concomitant]
     Dosage: 10 MG, DAILY
     Route: 048
  5. OXINORM [Concomitant]
     Dosage: UNK
  6. DICLOFENAC SODIUM [Concomitant]
     Dosage: 75 MG, DAILY
  7. PLAVIX [Concomitant]
     Dosage: 75 MG, DAILY
  8. TEGRETOL [Concomitant]
     Dosage: 400 MG, DAILY
  9. LASIX [Concomitant]
     Dosage: 4 MG, DAILY
  10. MAGMITT [Concomitant]
     Dosage: UNK
  11. REBAMIPIDE [Concomitant]
     Dosage: UNK
  12. PANVITAN [Concomitant]
     Dosage: UNK

REACTIONS (3)
  - Generalised oedema [Not Recovered/Not Resolved]
  - Ascites [Unknown]
  - Pleural effusion [Unknown]
